FAERS Safety Report 21855459 (Version 2)
Quarter: 2023Q1

REPORT INFORMATION
  Report Type: Spontaneous
  Country: PL (occurrence: PL)
  Receive Date: 20230112
  Receipt Date: 20230131
  Transmission Date: 20230417
  Serious: Yes (Other)
  Sender: FDA-Public Use
  Company Number: PL-MYLANLABS-2022M1093889

PATIENT
  Age: 65 Year
  Sex: Female

DRUGS (23)
  1. LACTULOSE [Interacting]
     Active Substance: LACTULOSE
     Indication: Dyschezia
     Dosage: UNK
     Route: 065
  2. PREGABALIN [Interacting]
     Active Substance: PREGABALIN
     Indication: Colorectal cancer
     Dosage: 450 MILLIGRAM, QD,(450 MG PER DAY)
     Route: 065
  3. PREGABALIN [Interacting]
     Active Substance: PREGABALIN
     Indication: Visceral pain
     Dosage: 450 MILLIGRAM, QD,(450 MG PER DAY)
     Route: 065
  4. PREGABALIN [Interacting]
     Active Substance: PREGABALIN
     Indication: Pain
  5. DULOXETINE [Interacting]
     Active Substance: DULOXETINE
     Indication: Colorectal cancer
     Dosage: 60 MILLIGRAM, QD, (PER DAY)
     Route: 065
  6. DULOXETINE [Interacting]
     Active Substance: DULOXETINE
     Indication: Visceral pain
  7. DULOXETINE [Interacting]
     Active Substance: DULOXETINE
     Indication: Pain
  8. BISACODYL [Suspect]
     Active Substance: BISACODYL
     Indication: Dyschezia
     Dosage: UNK
     Route: 065
  9. NALOXONE HYDROCHLORIDE\OXYCODONE HYDROCHLORIDE [Interacting]
     Active Substance: NALOXONE HYDROCHLORIDE\OXYCODONE HYDROCHLORIDE
     Indication: Colorectal cancer
     Dosage: UNK, 240MG OF OXYCODONE
     Route: 065
  10. NALOXONE HYDROCHLORIDE\OXYCODONE HYDROCHLORIDE [Interacting]
     Active Substance: NALOXONE HYDROCHLORIDE\OXYCODONE HYDROCHLORIDE
     Indication: Visceral pain
     Dosage: UNK
     Route: 065
  11. NALOXONE HYDROCHLORIDE\OXYCODONE HYDROCHLORIDE [Interacting]
     Active Substance: NALOXONE HYDROCHLORIDE\OXYCODONE HYDROCHLORIDE
     Indication: Pain
  12. OXYCODONE [Interacting]
     Active Substance: OXYCODONE
     Indication: Colorectal cancer
     Dosage: 240 MILLIGRAM, QD, (240 MG PER DAY)
     Route: 048
  13. OXYCODONE [Interacting]
     Active Substance: OXYCODONE
     Indication: Visceral pain
     Dosage: 180 MILLIGRAM, QD
     Route: 048
  14. OXYCODONE [Interacting]
     Active Substance: OXYCODONE
     Indication: Pain
     Dosage: 240 MILLIGRAM, QD, (240 MG PER DAY)
     Route: 048
  15. HYDROXYZINE [Interacting]
     Active Substance: HYDROXYZINE HYDROCHLORIDE
     Indication: Insomnia
     Dosage: 100 MILLIGRAM QD (BEFORE BEDTIME)
     Route: 065
  16. HYDROXYZINE [Interacting]
     Active Substance: HYDROXYZINE HYDROCHLORIDE
     Indication: Terminal insomnia
     Dosage: 100 MILLIGRAM QD (BEFORE BEDTIME)
     Route: 065
  17. HYDROXYZINE [Interacting]
     Active Substance: HYDROXYZINE HYDROCHLORIDE
     Indication: Visceral pain
     Dosage: UNK
     Route: 065
  18. HYDROXYZINE [Interacting]
     Active Substance: HYDROXYZINE HYDROCHLORIDE
     Indication: Colorectal cancer
  19. HYDROXYZINE [Interacting]
     Active Substance: HYDROXYZINE HYDROCHLORIDE
     Indication: Sleep disorder
  20. KETOPROFEN [Concomitant]
     Active Substance: KETOPROFEN
     Indication: Colorectal cancer
     Dosage: 200 MILLIGRAM, QD, (200 MG PER DAY)
     Route: 065
  21. KETOPROFEN [Concomitant]
     Active Substance: KETOPROFEN
     Indication: Visceral pain
  22. KETOPROFEN [Concomitant]
     Active Substance: KETOPROFEN
     Indication: Pain
  23. LORNOXICAM [Concomitant]
     Active Substance: LORNOXICAM
     Dosage: UNK
     Route: 065

REACTIONS (12)
  - Anticholinergic syndrome [Recovered/Resolved]
  - Dyschezia [Recovering/Resolving]
  - Insomnia [Unknown]
  - Pain [Recovering/Resolving]
  - Constipation [Recovering/Resolving]
  - Functional gastrointestinal disorder [Recovered/Resolved]
  - Overlap syndrome [Unknown]
  - Rash [Unknown]
  - Drug ineffective [Unknown]
  - Off label use [Unknown]
  - Potentiating drug interaction [Unknown]
  - Drug interaction [Unknown]
